FAERS Safety Report 25435456 (Version 3)
Quarter: 2025Q2

REPORT INFORMATION
  Report Type: Spontaneous
  Country: IT (occurrence: IT)
  Receive Date: 20250613
  Receipt Date: 20250627
  Transmission Date: 20250717
  Serious: Yes (Hospitalization)
  Sender: TAIHO ONCOLOGY INC
  Company Number: IT-MMM-Otsuka-CT069P3Q

PATIENT
  Age: 77 Year
  Sex: Female
  Weight: 55 kg

DRUGS (2)
  1. INQOVI [Suspect]
     Active Substance: CEDAZURIDINE\DECITABINE
     Indication: Acute myeloid leukaemia
     Dosage: 1 DF DAILY FOR 5 DAYS (CYCLE 1)
     Route: 048
     Dates: start: 20250228
  2. INQOVI [Suspect]
     Active Substance: CEDAZURIDINE\DECITABINE
     Dosage: 1 DF DAILY FOR 3 DAYS (CYCLE 2 AND CYCLE 3)
     Route: 048

REACTIONS (5)
  - Pneumonia pseudomonal [Recovered/Resolved with Sequelae]
  - Pancytopenia [Recovered/Resolved with Sequelae]
  - Dysgeusia [Recovering/Resolving]
  - Weight decreased [Unknown]
  - Decreased appetite [Unknown]

NARRATIVE: CASE EVENT DATE: 20250301
